FAERS Safety Report 25059468 (Version 1)
Quarter: 2025Q1

REPORT INFORMATION
  Report Type: Spontaneous
  Country: US (occurrence: None)
  Receive Date: 20250310
  Receipt Date: 20250310
  Transmission Date: 20250409
  Serious: No
  Sender: FDA-CTU
  Company Number: None

PATIENT
  Age: 8 Year
  Sex: Male

DRUGS (1)
  1. NORDITROPIN [Suspect]
     Active Substance: SOMATROPIN
     Indication: Hypopituitarism
     Route: 058
     Dates: start: 202402

REACTIONS (2)
  - Ischaemic stroke [None]
  - Brain neoplasm malignant [None]

NARRATIVE: CASE EVENT DATE: 20240530
